FAERS Safety Report 6932011-6 (Version None)
Quarter: 2010Q3

REPORT INFORMATION
  Report Type: 
  Country: None (occurrence: None)
  Receive Date: 20100813
  Receipt Date: 20100601
  Transmission Date: 20110219
  Serious: No
  Sender: FDA-Public Use
  Company Number: 1000014210

PATIENT
  Age: 46 Year
  Sex: Female

DRUGS (7)
  1. SAVELLA [Suspect]
     Indication: FIBROMYALGIA
     Dosage: 12.5 MG (12.5 MG, 1 IN 1 D), ORAL ; 25 MG (12.5 MG, 2 IN 1 D), ORAL ;  50 MG (25 MG, 2 IN 1 D), ORAL
     Route: 048
     Dates: start: 20100525, end: 20100525
  2. SAVELLA [Suspect]
     Indication: FIBROMYALGIA
     Dosage: 12.5 MG (12.5 MG, 1 IN 1 D), ORAL ; 25 MG (12.5 MG, 2 IN 1 D), ORAL ;  50 MG (25 MG, 2 IN 1 D), ORAL
     Route: 048
     Dates: start: 20100526, end: 20100527
  3. SAVELLA [Suspect]
     Indication: FIBROMYALGIA
     Dosage: 12.5 MG (12.5 MG, 1 IN 1 D), ORAL ; 25 MG (12.5 MG, 2 IN 1 D), ORAL ;  50 MG (25 MG, 2 IN 1 D), ORAL
     Route: 048
     Dates: start: 20100528
  4. SYNTHROID [Concomitant]
  5. CYTOMEL [Concomitant]
  6. PROMETRIUM [Concomitant]
  7. ESTROGEN PATCH [Concomitant]

REACTIONS (3)
  - DIZZINESS [None]
  - NAUSEA [None]
  - PALPITATIONS [None]
